FAERS Safety Report 5524722-4 (Version None)
Quarter: 2007Q4

REPORT INFORMATION
  Report Type: 
  Country: None (occurrence: None)
  Receive Date: 20071123
  Receipt Date: 20071115
  Transmission Date: 20080405
  Serious: Yes (Hospitalization, Other)
  Sender: FDA-Public Use
  Company Number: PHBS2007BE19051

PATIENT
  Age: 63 Year
  Sex: Female

DRUGS (4)
  1. LAMISIL [Suspect]
     Indication: TINEA PEDIS
     Route: 048
  2. LAMISIL [Suspect]
     Route: 061
  3. STAPHYCID [Concomitant]
     Indication: SUPERINFECTION
     Route: 065
  4. FRAXIPARINE [Concomitant]
     Indication: PROPHYLAXIS
     Route: 065

REACTIONS (4)
  - HEPATIC NECROSIS [None]
  - JAUNDICE [None]
  - PAIN IN EXTREMITY [None]
  - SUPERINFECTION [None]
